FAERS Safety Report 6114470-4 (Version None)
Quarter: 2009Q1

REPORT INFORMATION
  Report Type: 
  Country: None (occurrence: None)
  Receive Date: 20090313
  Receipt Date: 20090212
  Transmission Date: 20090719
  Serious: No
  Sender: FDA-Public Use
  Company Number: US-BAYER-200910596BCC

PATIENT
  Sex: Female
  Weight: 51 kg

DRUGS (4)
  1. ALEVE (CAPLET) [Suspect]
     Indication: HEADACHE
     Dosage: UNIT DOSE: 220 MG
     Dates: start: 20090210
  2. ALEVE (CAPLET) [Suspect]
     Dosage: UNIT DOSE: 220 MG
     Dates: start: 20090211
  3. COQ10 [Concomitant]
  4. PRUITAN MULTIVITAMIN [Concomitant]

REACTIONS (1)
  - HEADACHE [None]
